FAERS Safety Report 6204912-8 (Version None)
Quarter: 2009Q2

REPORT INFORMATION
  Report Type: 
  Country: None (occurrence: None)
  Receive Date: 20090526
  Receipt Date: 20090515
  Transmission Date: 20091009
  Serious: Yes (Hospitalization)
  Sender: FDA-Public Use
  Company Number: 0461

PATIENT
  Sex: Male

DRUGS (9)
  1. INDOMETHACIN [Suspect]
     Indication: BONE PAIN
     Dosage: PO
     Route: 048
     Dates: start: 20080717, end: 20080721
  2. FUROSEMIDE [Suspect]
     Indication: CARDIAC FAILURE
     Dosage: 80 MG PO
     Route: 048
     Dates: start: 20080714
  3. SPIRONOLACTONE [Suspect]
     Indication: CARDIAC FAILURE
     Dosage: 25 MG PO
     Route: 048
  4. HYDRALAZINE HYDROCHLORIDE [Concomitant]
  5. ACETYLSALICYLIC ACID SRT [Concomitant]
  6. ALLOPURINOL [Concomitant]
  7. HYDRALAZINE HYDROCHLORIDE [Concomitant]
  8. ACETYLSALOCYCYLIC ACID [Concomitant]
  9. ALOPURINOL [Concomitant]

REACTIONS (2)
  - CARDIAC FAILURE [None]
  - RENAL FAILURE ACUTE [None]
